FAERS Safety Report 7159448-7 (Version None)
Quarter: 2010Q4

REPORT INFORMATION
  Report Type: 
  Country: None (occurrence: None)
  Receive Date: 20101214
  Receipt Date: 20100907
  Transmission Date: 20110411
  Serious: No
  Sender: FDA-Public Use
  Company Number: US-ASTRAZENECA-2010SE41963

PATIENT
  Age: 75 Year
  Sex: Female
  Weight: 83 kg

DRUGS (7)
  1. CRESTOR [Suspect]
     Indication: HYPERCHOLESTEROLAEMIA
     Route: 048
  2. CRESTOR [Suspect]
     Route: 048
  3. COUMADIN [Concomitant]
     Indication: ATRIAL FIBRILLATION
  4. ATIVAN [Concomitant]
  5. POTASSIUM CHLORIDE [Concomitant]
     Indication: SUPPLEMENTATION THERAPY
  6. CALAN [Concomitant]
  7. ASPIRIN/MAALOX COATING [Concomitant]

REACTIONS (4)
  - GAIT DISTURBANCE [None]
  - INSOMNIA [None]
  - MUSCULOSKELETAL STIFFNESS [None]
  - MYALGIA [None]
